FAERS Safety Report 4319510-0 (Version None)
Quarter: 2004Q1

REPORT INFORMATION
  Report Type: 
  Country: None (occurrence: None)
  Receive Date: 20040318
  Receipt Date: 20040318
  Transmission Date: 20041129
  Serious: Yes (Other)
  Sender: FDA-Public Use
  Company Number: None

PATIENT
  Age: 70 Year
  Sex: Female
  Weight: 76.6579 kg

DRUGS (5)
  1. CARBOPLATIN [Suspect]
     Indication: SMALL CELL LUNG CANCER STAGE UNSPECIFIED
     Dosage: 350 MG IV Q3W
     Route: 042
     Dates: start: 20040211
  2. CARBOPLATIN [Suspect]
     Indication: SMALL CELL LUNG CANCER STAGE UNSPECIFIED
     Dosage: 350 MG IV Q3W
     Route: 042
     Dates: start: 20040317
  3. CARBOPLATIN [Suspect]
     Indication: SMALL CELL LUNG CANCER STAGE UNSPECIFIED
     Dosage: 350 MG
     Route: 042
     Dates: start: 20040317
  4. KYTRIL [Concomitant]
  5. DECADRON [Concomitant]

REACTIONS (3)
  - COMA [None]
  - DROOLING [None]
  - HYPERSENSITIVITY [None]
